FAERS Safety Report 6122198-X (Version None)
Quarter: 2009Q1

REPORT INFORMATION
  Report Type: 
  Country: None (occurrence: None)
  Receive Date: 20090316
  Receipt Date: 20090316
  Transmission Date: 20090719
  Serious: Yes (Life-Threatening, Hospitalization, Other)
  Sender: FDA-Public Use
  Company Number: None

PATIENT
  Sex: Female
  Weight: 55.7924 kg

DRUGS (1)
  1. HALDOL SOLUTAB [Suspect]
     Dosage: 2MGS 1 TIME DOSE IM
     Route: 030
     Dates: start: 20030703, end: 20030703

REACTIONS (4)
  - DYSTONIA [None]
  - MOVEMENT DISORDER [None]
  - PARALYSIS [None]
  - UNRESPONSIVE TO STIMULI [None]
